FAERS Safety Report 23710693 (Version 1)
Quarter: 2024Q2

REPORT INFORMATION
  Report Type: Spontaneous
  Country: GB (occurrence: GB)
  Receive Date: 20240405
  Receipt Date: 20240405
  Transmission Date: 20240716
  Serious: Yes (Other)
  Sender: FDA-Public Use
  Company Number: GB-MHRA-MED-202403190841374990-GFSHK

PATIENT
  Age: 36 Year
  Sex: Male
  Weight: 101 kg

DRUGS (1)
  1. LAMOTRIGINE [Suspect]
     Active Substance: LAMOTRIGINE
     Indication: Bipolar disorder
     Dosage: 25 MILLIGRAM
     Route: 065
     Dates: start: 20240318, end: 20240318

REACTIONS (1)
  - Multiple allergies [Recovering/Resolving]

NARRATIVE: CASE EVENT DATE: 20240318
